FAERS Safety Report 13534582 (Version 2)
Quarter: 2017Q2

REPORT INFORMATION
  Report Type: Report from Study
  Country: SE (occurrence: SE)
  Receive Date: 20170511
  Receipt Date: 20170613
  Transmission Date: 20170830
  Serious: Yes (Death)
  Sender: FDA-Public Use
  Company Number: SE-PFIZER INC-2017200397

PATIENT
  Age: 82 Year
  Sex: Male
  Weight: 77 kg

DRUGS (2)
  1. GENOTROPIN [Suspect]
     Active Substance: SOMATROPIN
     Dosage: 0.4 MG, DAILY, 7 INJECTIONS PER WEEK
     Dates: start: 20141010
  2. HYDROCORTISON /00028601/ [Concomitant]
     Active Substance: HYDROCORTISONE
     Indication: HYPOPITUITARISM
     Dosage: UNK
     Route: 048
     Dates: start: 20141010

REACTIONS (1)
  - Melaena [Fatal]

NARRATIVE: CASE EVENT DATE: 20170329
